FAERS Safety Report 5281407-X (Version None)
Quarter: 2007Q1

REPORT INFORMATION
  Report Type: 
  Country: None (occurrence: None)
  Receive Date: 20070328
  Receipt Date: 20070328
  Transmission Date: 20070707
  Serious: Yes (Other)
  Sender: FDA-Public Use
  Company Number: None

PATIENT
  Sex: Male
  Weight: 81.6475 kg

DRUGS (4)
  1. GEODON [Suspect]
     Indication: DEPRESSION
     Dosage: 40 MG  BID  PO
     Route: 048
     Dates: start: 20070309, end: 20070311
  2. HUMALOG INSULIN SLIDING SCALE [Concomitant]
  3. ALTACE [Concomitant]
  4. IBUPROFEN [Concomitant]

REACTIONS (1)
  - DYSTONIA [None]
